FAERS Safety Report 19502482 (Version 1)
Quarter: 2021Q3

REPORT INFORMATION
  Report Type: Spontaneous
  Country: US (occurrence: US)
  Receive Date: 20210707
  Receipt Date: 20210707
  Transmission Date: 20211014
  Serious: Yes (Hospitalization)
  Sender: FDA-Public Use
  Company Number: US-LUPIN PHARMACEUTICALS INC.-2021-11125

PATIENT
  Age: 76 Year
  Sex: Male

DRUGS (5)
  1. PREDNISONE. [Suspect]
     Active Substance: PREDNISONE
     Indication: POLYMYALGIA RHEUMATICA
     Dosage: 7.5 MILLIGRAM
     Route: 065
  2. REMDESIVIR. [Concomitant]
     Active Substance: REMDESIVIR
     Indication: EVIDENCE BASED TREATMENT
     Dosage: UNK
     Route: 065
  3. METHYLPREDNISOLONE. [Suspect]
     Active Substance: METHYLPREDNISOLONE
     Indication: HYPOXIA
     Dosage: 1 MILLIGRAM/KILOGRAM
     Route: 065
  4. PREDNISONE. [Suspect]
     Active Substance: PREDNISONE
     Indication: HYPOXIA
  5. DECADRON [Concomitant]
     Active Substance: DEXAMETHASONE
     Indication: EVIDENCE BASED TREATMENT
     Dosage: UNK
     Route: 065

REACTIONS (2)
  - Drug ineffective for unapproved indication [Unknown]
  - Off label use [Unknown]
